FAERS Safety Report 24955173 (Version 1)
Quarter: 2025Q1

REPORT INFORMATION
  Report Type: Spontaneous
  Country: SA (occurrence: None)
  Receive Date: 20250210
  Receipt Date: 20250210
  Transmission Date: 20250409
  Serious: Yes (Disabling)
  Sender: FDA-CTU
  Company Number: None

PATIENT
  Age: 30 Year
  Sex: Male

DRUGS (1)
  1. ISOTRETINOIN [Suspect]
     Active Substance: ISOTRETINOIN
     Dates: start: 20151122, end: 20160511

REACTIONS (3)
  - Loss of libido [None]
  - Erectile dysfunction [None]
  - Adverse drug reaction [None]

NARRATIVE: CASE EVENT DATE: 20161011
